FAERS Safety Report 5809169-5 (Version None)
Quarter: 2008Q3

REPORT INFORMATION
  Report Type: 
  Country: None (occurrence: None)
  Receive Date: 20080714
  Receipt Date: 20080707
  Transmission Date: 20090109
  Serious: Yes (Life-Threatening)
  Sender: FDA-Public Use
  Company Number: JP-ASTRAZENECA-2008AP05310

PATIENT
  Age: 81 Year
  Sex: Male

DRUGS (3)
  1. CASODEX [Suspect]
     Indication: PROSTATE CANCER
     Route: 048
     Dates: start: 20061117, end: 20070511
  2. ZOLADEX [Suspect]
     Indication: PROSTATE CANCER
     Route: 058
     Dates: start: 20041022, end: 20080118
  3. ODYNE [Suspect]
     Indication: PROSTATE CANCER
     Route: 048
     Dates: start: 20040110, end: 20061101

REACTIONS (1)
  - MYELODYSPLASTIC SYNDROME [None]
